FAERS Safety Report 20307252 (Version 1)
Quarter: 2022Q1

REPORT INFORMATION
  Report Type: Spontaneous
  Country: TW (occurrence: TW)
  Receive Date: 20220107
  Receipt Date: 20220107
  Transmission Date: 20220423
  Serious: Yes (Life-Threatening, Hospitalization, Other)
  Sender: FDA-Public Use
  Company Number: TW-BION-010238

PATIENT
  Age: 54 Year
  Sex: Male

DRUGS (5)
  1. AZITHROMYCIN [Interacting]
     Active Substance: AZITHROMYCIN
     Indication: Mycobacterial infection
  2. LINEZOLID [Interacting]
     Active Substance: LINEZOLID
     Indication: Mycobacterial infection
     Dosage: TWICE A DAY
     Route: 048
  3. PREDNISOLONE [Concomitant]
     Active Substance: PREDNISOLONE
     Indication: Immunosuppression
  4. MYCOPHENOLIC ACID [Concomitant]
     Active Substance: MYCOPHENOLIC ACID
     Indication: Immunosuppression
  5. SIROLIMUS [Concomitant]
     Active Substance: SIROLIMUS
     Indication: Immunosuppression

REACTIONS (4)
  - Lactic acidosis [Recovered/Resolved]
  - Drug interaction [Unknown]
  - Condition aggravated [Recovered/Resolved]
  - Product use in unapproved indication [Not Recovered/Not Resolved]
